FAERS Safety Report 21786834 (Version 1)
Quarter: 2022Q4

REPORT INFORMATION
  Report Type: Spontaneous
  Country: ES (occurrence: ES)
  Receive Date: 20221228
  Receipt Date: 20221228
  Transmission Date: 20230113
  Serious: Yes (Hospitalization, Other)
  Sender: FDA-Public Use
  Company Number: ES-MEDO2008-L202211144

PATIENT
  Age: 23 Year
  Sex: Male

DRUGS (18)
  1. LACOSAMIDE [Suspect]
     Active Substance: LACOSAMIDE
     Indication: New onset refractory status epilepticus
     Dosage: 500 MILLIGRAM, ONCE A DAY
     Route: 065
  2. ZONISAMIDE [Suspect]
     Active Substance: ZONISAMIDE
     Indication: New onset refractory status epilepticus
     Dosage: 200 MILLIGRAM, ONCE A DAY
     Route: 065
  3. ZONISAMIDE [Suspect]
     Active Substance: ZONISAMIDE
     Dosage: 500 MILLIGRAM, ONCE A DAY
     Route: 065
  4. ANAKINRA [Suspect]
     Active Substance: ANAKINRA
     Indication: New onset refractory status epilepticus
     Dosage: 5 MILLIGRAM/KILOGRAM, TWO TIMES A DAY (AT DAY 28)
     Route: 065
  5. BRIVARACETAM [Suspect]
     Active Substance: BRIVARACETAM
     Indication: New onset refractory status epilepticus
     Dosage: 400 MILLIGRAM, ONCE A DAY
     Route: 065
  6. CLONAZEPAM [Suspect]
     Active Substance: CLONAZEPAM
     Indication: Status epilepticus
     Dosage: 3 MILLIGRAM, ONCE A DAY
     Route: 065
  7. CLONAZEPAM [Suspect]
     Active Substance: CLONAZEPAM
     Indication: New onset refractory status epilepticus
  8. HUMAN IMMUNOGLOBULIN G [Suspect]
     Active Substance: HUMAN IMMUNOGLOBULIN G
     Indication: Product used for unknown indication
     Dosage: 0.4 GRAM PER KILOGRAM, DAILY
     Route: 042
  9. METHYLPREDNISOLONE [Suspect]
     Active Substance: METHYLPREDNISOLONE
     Indication: Status epilepticus
     Dosage: 1 GRAM, ONCE A DAY (ADMINISTERED AT DAYS 14, 17, 20 AND 23, RESPECTIVELY)
     Route: 065
  10. PERAMPANEL [Suspect]
     Active Substance: PERAMPANEL
     Indication: New onset refractory status epilepticus
     Dosage: 12 MILLIGRAM, ONCE A DAY
     Route: 065
  11. PERAMPANEL [Suspect]
     Active Substance: PERAMPANEL
     Dosage: 20 MILLIGRAM, ONCE A DAY
     Route: 065
  12. PHENOBARBITAL [Suspect]
     Active Substance: PHENOBARBITAL
     Indication: New onset refractory status epilepticus
     Dosage: 800 MILLIGRAM, ONCE A DAY
     Route: 065
  13. PHENOBARBITAL [Suspect]
     Active Substance: PHENOBARBITAL
     Indication: Sedation
  14. PHENYTOIN [Suspect]
     Active Substance: PHENYTOIN
     Indication: New onset refractory status epilepticus
     Dosage: 800 MILLIGRAM, ONCE A DAY
     Route: 065
  15. TOCILIZUMAB [Suspect]
     Active Substance: TOCILIZUMAB
     Indication: Product used for unknown indication
     Dosage: 8 MILLIGRAM/KILOGRAM, ONCE A DAY (ADMINISTERED AT DAYS 14, 17, 20 AND 23, RESPECTIVELY)
     Route: 065
  16. VALPROIC ACID [Suspect]
     Active Substance: VALPROIC ACID
     Indication: New onset refractory status epilepticus
     Dosage: 1500 MILLIGRAM, ONCE A DAY
     Route: 065
  17. VALPROIC ACID [Suspect]
     Active Substance: VALPROIC ACID
     Dosage: 3400 MILLIGRAM, ONCE A DAY
     Route: 065
  18. CANNABIDIOL [Concomitant]
     Active Substance: CANNABIDIOL
     Indication: Product used for unknown indication
     Dosage: 10 MILLIGRAM, ONCE A DAY
     Route: 065

REACTIONS (3)
  - Change in seizure presentation [Unknown]
  - Drug ineffective [Unknown]
  - Epilepsy [Unknown]
